FAERS Safety Report 8867623 (Version 1)
Quarter: 2012Q4

REPORT INFORMATION
  Report Type: 
  Country: US (occurrence: US)
  Receive Date: 20121025
  Receipt Date: 20121025
  Transmission Date: 20130627
  Serious: No
  Sender: FDA-Public Use
  Company Number: US-AMGEN-USASP2012017479

PATIENT
  Age: 55 Year
  Sex: Male
  Weight: 93.88 kg

DRUGS (9)
  1. ENBREL [Suspect]
     Indication: PRODUCT USED FOR UNKNOWN INDICATION
     Dosage: 50 mg, qwk
     Route: 058
  2. PRILOSEC                           /00661201/ [Concomitant]
     Dosage: 20 mg, UNK
  3. VITAMIN D /00107901/ [Concomitant]
     Dosage: 50000 IU, UNK
  4. LOVASTATIN [Concomitant]
     Dosage: 10 mg, UNK
  5. LISINOPRIL [Concomitant]
     Dosage: 5 mg, UNK
  6. METOPROLOL [Concomitant]
     Dosage: 25 mg, UNK
  7. BAYER ASPIRIN WITH HEART ADVANTAGE [Concomitant]
     Dosage: 400 mg, UNK
  8. GLIPIZIDE [Concomitant]
     Dosage: 5 mg, UNK
  9. METFORMIN [Concomitant]
     Dosage: 500 mg, UNK

REACTIONS (2)
  - Tachycardia [Unknown]
  - Bronchitis [Recovered/Resolved]
